FAERS Safety Report 19843929 (Version 1)
Quarter: 2021Q3

REPORT INFORMATION
  Report Type: Spontaneous
  Country: US (occurrence: US)
  Receive Date: 20210916
  Receipt Date: 20210916
  Transmission Date: 20211014
  Serious: No
  Sender: FDA-Public Use
  Company Number: US-BAYER-2021-212232

PATIENT

DRUGS (2)
  1. ASPIRIN (PAIN AND FEVER) [Concomitant]
     Active Substance: ASPIRIN
     Route: 048
  2. ALEVE [Suspect]
     Active Substance: NAPROXEN SODIUM
     Dosage: 2 DF
     Route: 048

REACTIONS (1)
  - Expired product administered [Unknown]
